FAERS Safety Report 7678923-X (Version None)
Quarter: 2011Q3

REPORT INFORMATION
  Report Type: 
  Country: None (occurrence: None)
  Receive Date: 20110812
  Receipt Date: 20110803
  Transmission Date: 20111222
  Serious: No
  Sender: FDA-Public Use
  Company Number: US-BIOGENIDEC-2010BI013300

PATIENT
  Sex: Female

DRUGS (2)
  1. STEROIDS [NOS] [Concomitant]
  2. TYSABRI [Suspect]
     Indication: MULTIPLE SCLEROSIS
     Route: 042
     Dates: start: 20100311

REACTIONS (11)
  - BALANCE DISORDER [None]
  - BLOOD CHOLESTEROL INCREASED [None]
  - BLOOD CHOLESTEROL ABNORMAL [None]
  - HEADACHE [None]
  - MIGRAINE [None]
  - TEMPERATURE INTOLERANCE [None]
  - VOMITING [None]
  - MULTIPLE SCLEROSIS [None]
  - WEIGHT INCREASED [None]
  - MULTIPLE SCLEROSIS RELAPSE [None]
  - NAUSEA [None]
